FAERS Safety Report 9706376 (Version 1)
Quarter: 2013Q4

REPORT INFORMATION
  Report Type: Spontaneous
  Country: US (occurrence: US)
  Receive Date: 20131125
  Receipt Date: 20131125
  Transmission Date: 20140711
  Serious: Yes (Hospitalization)
  Sender: FDA-Public Use
  Company Number: US-BIOGENIDEC-2013BI112569

PATIENT
  Age: 34 Year
  Sex: Male

DRUGS (2)
  1. TYSABRI [Suspect]
     Indication: MULTIPLE SCLEROSIS
     Route: 042
     Dates: start: 20100518, end: 20120119
  2. TYSABRI [Suspect]
     Indication: MULTIPLE SCLEROSIS
     Route: 042
     Dates: start: 20130826, end: 20130826

REACTIONS (1)
  - Multiple sclerosis relapse [Unknown]
